FAERS Safety Report 10313160 (Version 1)
Quarter: 2014Q3

REPORT INFORMATION
  Report Type: Spontaneous
  Country: CA (occurrence: CA)
  Receive Date: 20140718
  Receipt Date: 20140718
  Transmission Date: 20150326
  Serious: Yes (Other)
  Sender: FDA-Public Use
  Company Number: CA-TEVA-495185USA

PATIENT
  Age: 78 Year
  Sex: Female
  Weight: 68.1 kg

DRUGS (6)
  1. VOLTAREN [Concomitant]
     Active Substance: DICLOFENAC SODIUM
     Dosage: SOLUTION OPHTHALMIC
  2. NORVASC [Concomitant]
     Active Substance: AMLODIPINE BESYLATE
  3. APO-OFLOXACIN [Concomitant]
     Dosage: SOLUTION OPHTHALMIC
  4. RATIO-IRBESARTAN AND HYDROCHLOROTHIAZIDE [Suspect]
     Active Substance: HYDROCHLOROTHIAZIDE\IRBESARTAN
     Indication: PRODUCT USED FOR UNKNOWN INDICATION
     Dosage: 1 DOSAGE FORMS DAILY;
     Route: 048
  5. PMS-RANITIDINE [Concomitant]
  6. RATIO-PREDNISOLONE [Concomitant]
     Active Substance: PREDNISOLONE
     Dosage: SUSPENSION OPHTHALMIC

REACTIONS (12)
  - Pain in extremity [Recovered/Resolved]
  - Pain [Recovered/Resolved]
  - Aphagia [Recovered/Resolved]
  - Abdominal discomfort [Recovered/Resolved]
  - Weight decreased [Recovered/Resolved]
  - Arthralgia [Recovered/Resolved]
  - Gait disturbance [Recovered/Resolved]
  - Abdominal pain upper [Recovered/Resolved]
  - Musculoskeletal pain [Recovered/Resolved]
  - Bone pain [Recovered/Resolved]
  - Myalgia [Recovered/Resolved]
  - Product substitution issue [Recovered/Resolved]
